FAERS Safety Report 16478156 (Version 3)
Quarter: 2019Q3

REPORT INFORMATION
  Report Type: Spontaneous
  Country: IT (occurrence: IT)
  Receive Date: 20190626
  Receipt Date: 20190712
  Transmission Date: 20191004
  Serious: Yes (Other)
  Sender: FDA-Public Use
  Company Number: IT-ACCORD-135060

PATIENT
  Age: 49 Year
  Sex: Female
  Weight: 79 kg

DRUGS (4)
  1. METOPROLOL. [Concomitant]
     Active Substance: METOPROLOL
     Indication: HYPERTROPHIC CARDIOMYOPATHY
     Route: 048
  2. CARBOPLATIN AHCL [Suspect]
     Active Substance: CARBOPLATIN
     Indication: OVARIAN CANCER
     Route: 042
     Dates: start: 20190517, end: 20190517
  3. AVASTIN [Suspect]
     Active Substance: BEVACIZUMAB
     Indication: OVARIAN CANCER
     Route: 042
     Dates: start: 20190517, end: 20190517
  4. GEMCITABINE. [Suspect]
     Active Substance: GEMCITABINE
     Indication: OVARIAN CANCER
     Route: 042
     Dates: start: 20190517, end: 20190517

REACTIONS (3)
  - Nausea [Unknown]
  - Arthralgia [Unknown]
  - Thrombocytopenia [Recovering/Resolving]

NARRATIVE: CASE EVENT DATE: 20190527
